FAERS Safety Report 20292565 (Version 1)
Quarter: 2022Q1

REPORT INFORMATION
  Report Type: Spontaneous
  Country: US (occurrence: US)
  Receive Date: 20220104
  Receipt Date: 20220104
  Transmission Date: 20220423
  Serious: No
  Sender: FDA-Public Use
  Company Number: US-BIOMARINAP-US-2021-140319

PATIENT
  Age: 33 Year
  Sex: Female
  Weight: 80.635 kg

DRUGS (1)
  1. SAPROPTERIN DIHYDROCHLORIDE [Suspect]
     Active Substance: SAPROPTERIN DIHYDROCHLORIDE
     Indication: Phenylketonuria
     Dosage: UNK UNK, QD
     Route: 065
     Dates: end: 20211206

REACTIONS (16)
  - Hiatus hernia [Unknown]
  - Reflux laryngitis [Unknown]
  - Nasal congestion [Unknown]
  - Oesophagitis [Unknown]
  - Lymphadenopathy [Unknown]
  - Sinus disorder [Unknown]
  - Secretion discharge [Unknown]
  - Cough [Unknown]
  - Nasal inflammation [Unknown]
  - Irritable bowel syndrome [Unknown]
  - Haematochezia [Unknown]
  - Weight decreased [Unknown]
  - Diarrhoea [Unknown]
  - Dizziness [Unknown]
  - Nausea [Unknown]
  - Abdominal pain upper [Unknown]

NARRATIVE: CASE EVENT DATE: 20210501
